FAERS Safety Report 4664202-1 (Version None)
Quarter: 2005Q2

REPORT INFORMATION
  Report Type: 
  Country: None (occurrence: None)
  Receive Date: 20050516
  Receipt Date: 20050516
  Transmission Date: 20051028
  Serious: Yes (Hospitalization)
  Sender: FDA-Public Use
  Company Number: None

PATIENT
  Age: 84 Year
  Sex: Male
  Weight: 81.1939 kg

DRUGS (3)
  1. GLYBURIDE [Suspect]
     Indication: DIABETES MELLITUS
  2. METFORMIN    850 MG BID [Suspect]
     Indication: DIABETES MELLITUS
  3. DARVOCET [Suspect]
     Indication: ARTHRALGIA

REACTIONS (3)
  - CERVICAL VERTEBRAL FRACTURE [None]
  - FALL [None]
  - HYPOGLYCAEMIA [None]
